FAERS Safety Report 4386999-0 (Version None)
Quarter: 2004Q2

REPORT INFORMATION
  Report Type: 
  Country: None (occurrence: None)
  Receive Date: 20040625
  Receipt Date: 20040610
  Transmission Date: 20050107
  Serious: Yes (Hospitalization)
  Sender: FDA-Public Use
  Company Number: 206378

PATIENT
  Age: 65 Year
  Sex: Female
  Weight: 62 kg

DRUGS (2)
  1. HERCEPTIN [Suspect]
     Indication: BREAST CANCER METASTATIC
     Dosage: 130 MG, 1/WEEK, INTRAVENOUS
     Route: 042
     Dates: start: 20030217, end: 20040309
  2. CARBOPLATIN [Concomitant]

REACTIONS (2)
  - LEFT VENTRICULAR FAILURE [None]
  - PULMONARY EMBOLISM [None]
